FAERS Safety Report 9203321 (Version 1)
Quarter: 2013Q2

REPORT INFORMATION
  Report Type: Report from Study
  Country: ZA (occurrence: ZA)
  Receive Date: 20130402
  Receipt Date: 20130402
  Transmission Date: 20140414
  Serious: No
  Sender: FDA-Public Use
  Company Number: ZA-JNJFOC-20130311708

PATIENT
  Age: 49 Year
  Sex: Female
  Weight: 84 kg

DRUGS (1)
  1. STELARA [Suspect]
     Indication: ERYTHRODERMIC PSORIASIS
     Route: 058

REACTIONS (1)
  - Erythrodermic psoriasis [Unknown]
